FAERS Safety Report 8739986 (Version 2)
Quarter: 2013Q4

REPORT INFORMATION
  Report Type: Spontaneous
  Country: FR (occurrence: FR)
  Receive Date: 20120823
  Receipt Date: 20131105
  Transmission Date: 20140711
  Serious: Yes (Disabling)
  Sender: FDA-Public Use
  Company Number: FR-009507513-1208FRA007423

PATIENT
  Age: 69 Year
  Sex: Female

DRUGS (1)
  1. TIENAM 500MG/500MG, POUDRE POUR PERFUSION [Suspect]
     Indication: OSTEOARTHRITIS
     Dosage: 1 G, TID
     Route: 042
     Dates: start: 20120510, end: 20120719

REACTIONS (4)
  - Tooth malformation [Not Recovered/Not Resolved]
  - Ageusia [Not Recovered/Not Resolved]
  - Salivary hypersecretion [Not Recovered/Not Resolved]
  - Thrombocytopenia [Not Recovered/Not Resolved]
